FAERS Safety Report 11693854 (Version 1)
Quarter: 2015Q4

REPORT INFORMATION
  Report Type: Spontaneous
  Country: IR (occurrence: IR)
  Receive Date: 20151103
  Receipt Date: 20151103
  Transmission Date: 20160304
  Serious: Yes (Other)
  Sender: FDA-Public Use
  Company Number: IR-BD RX INC-2015BDR00626

PATIENT
  Age: 47 Year
  Sex: Male

DRUGS (1)
  1. DEXAMETHASONE SODIUM PHOSPHATE. [Suspect]
     Active Substance: DEXAMETHASONE SODIUM PHOSPHATE
     Dosage: UNK UNK, 1X/DAY
     Route: 030

REACTIONS (3)
  - Myocarditis [Recovered/Resolved]
  - Pericardial effusion [None]
  - Drug abuse [Recovered/Resolved]
